FAERS Safety Report 9525996 (Version 1)
Quarter: 2013Q3

REPORT INFORMATION
  Report Type: Spontaneous
  Country: US (occurrence: US)
  Receive Date: 20130915
  Receipt Date: 20130915
  Transmission Date: 20140515
  Serious: No
  Sender: FDA-Public Use
  Company Number: US-B.I. PHARMACEUTICALS,INC./RIDGEFIELD-2013-BI-27352BP

PATIENT
  Age: 59 Year
  Sex: Male
  Weight: 73 kg

DRUGS (3)
  1. COMBIVENT [Suspect]
     Indication: PULMONARY HYPERTENSION
     Dosage: STRENGTH: 18 MCG / 103 MCG; DAILY DOSE: 144MCG/824MCG
     Route: 055
     Dates: end: 20130801
  2. COMBIVENT [Suspect]
     Indication: PULMONARY HYPERTENSION
     Dosage: STRENGTH: 20 MCG / 100 MCG; DAILY DOSE: 1/4X/DAY
     Route: 055
     Dates: start: 20130802
  3. ADVAIR [Concomitant]
     Indication: PULMONARY HYPERTENSION
     Dosage: FORMULATION: INHALATION SOLUTION,DOSE PER APPLICATION: 500MCG/50MCG; DAILY DOSE: 1000MCG/100MCG
     Route: 055

REACTIONS (3)
  - Cough [Not Recovered/Not Resolved]
  - Off label use [Recovered/Resolved]
  - Off label use [Not Recovered/Not Resolved]
